FAERS Safety Report 7494983-3 (Version None)
Quarter: 2011Q2

REPORT INFORMATION
  Report Type: 
  Country: None (occurrence: None)
  Receive Date: 20110520
  Receipt Date: 20110511
  Transmission Date: 20111010
  Serious: No
  Sender: FDA-Public Use
  Company Number: US-B.I. PHARMACEUTICALS,INC./RIDGEFIELD-2011-BP-12877BP

PATIENT
  Sex: Male

DRUGS (2)
  1. PRADAXA [Suspect]
     Dosage: 300 MG
     Route: 048
     Dates: start: 20110401, end: 20110401
  2. PRADAXA [Suspect]
     Dosage: 75 MG
     Route: 048
     Dates: start: 20110401

REACTIONS (3)
  - URINE ODOUR ABNORMAL [None]
  - HEADACHE [None]
  - CHROMATURIA [None]
